FAERS Safety Report 6641183-2 (Version None)
Quarter: 2010Q1

REPORT INFORMATION
  Report Type: 
  Country: None (occurrence: None)
  Receive Date: 20100318
  Receipt Date: 20100305
  Transmission Date: 20100710
  Serious: Yes (Other)
  Sender: FDA-Public Use
  Company Number: PHHY2010SE13852

PATIENT
  Age: 36 Year
  Sex: Male

DRUGS (8)
  1. CYCLOSPORINE [Suspect]
     Indication: MYASTHENIA GRAVIS
     Dosage: 100 MG/DAY
  2. MYCOPHENOLATE MOFETIL [Suspect]
     Indication: MYASTHENIA GRAVIS
     Dosage: 1000 MG/DAY
  3. CORTICOSTEROID NOS [Suspect]
     Indication: MYASTHENIA GRAVIS
     Route: 042
  4. AZATHIOPRINE [Suspect]
     Indication: MYASTHENIA GRAVIS
  5. RITUXIMAB [Concomitant]
     Indication: MYASTHENIA GRAVIS
     Dosage: 375 MG/M2/WEEK
     Dates: start: 20041001
  6. SOLU-CORTEF [Concomitant]
     Dosage: 100 MG
  7. PARACETAMOL [Concomitant]
     Dosage: 1000 MG
  8. CLEMASTINE FUMARATE [Concomitant]
     Dosage: 2 MG

REACTIONS (5)
  - DYSPHAGIA [None]
  - MASTICATION DISORDER [None]
  - MYASTHENIA GRAVIS [None]
  - SPEECH DISORDER [None]
  - SQUAMOUS CELL CARCINOMA [None]
